FAERS Safety Report 23800557 (Version 1)
Quarter: 2024Q2

REPORT INFORMATION
  Report Type: Spontaneous
  Country: CN (occurrence: CN)
  Receive Date: 20240430
  Receipt Date: 20240430
  Transmission Date: 20240716
  Serious: Yes (Hospitalization, Other)
  Sender: FDA-Public Use
  Company Number: CN-PFIZER INC-PV202400055829

PATIENT
  Age: 30 Year
  Sex: Female
  Weight: 70 kg

DRUGS (4)
  1. METHOTREXATE SODIUM [Suspect]
     Active Substance: METHOTREXATE SODIUM
     Indication: Therapeutic procedure
     Dosage: 0.08 G, 1X/DAY
     Route: 030
     Dates: start: 20240321, end: 20240321
  2. METHOTREXATE SODIUM [Suspect]
     Active Substance: METHOTREXATE SODIUM
     Indication: Ectopic pregnancy
  3. MIFEPRISTONE [Concomitant]
     Active Substance: MIFEPRISTONE
     Indication: Ectopic pregnancy
     Dosage: 50 MG, 3X/DAY
     Route: 048
     Dates: start: 20240321, end: 20240324
  4. ETHAMSYLATE [Concomitant]
     Active Substance: ETHAMSYLATE
     Indication: Haemostasis
     Dosage: 2 G, 1X/DAY
     Route: 041
     Dates: start: 20240325, end: 20240326

REACTIONS (9)
  - Myelosuppression [Recovered/Resolved]
  - Salpingectomy [Unknown]
  - Off label use [Unknown]
  - Rash [Recovered/Resolved]
  - Mouth ulceration [Recovered/Resolved]
  - Pharyngeal swelling [Recovered/Resolved]
  - Oropharyngeal pain [Recovered/Resolved]
  - Oral pain [Recovered/Resolved]
  - Mouth swelling [Recovered/Resolved]

NARRATIVE: CASE EVENT DATE: 20240321
